FAERS Safety Report 11640627 (Version 1)
Quarter: 2015Q4

REPORT INFORMATION
  Report Type: Report from Study
  Country: TR (occurrence: TR)
  Receive Date: 20151019
  Receipt Date: 20151019
  Transmission Date: 20160304
  Serious: Yes (Other)
  Sender: FDA-Public Use
  Company Number: TR-BAXTER-2014BAX013376

PATIENT

DRUGS (3)
  1. N-ACETYLCYSTEINE [Suspect]
     Active Substance: ACETYLCYSTEINE
     Indication: NEPHROPROTECTIVE THERAPY
     Dosage: FOR 24 HOURS BEFORE AND 48 HOURS AFTER THE PROCEDURE
     Route: 048
  2. IZOTONIK SODYUM KLOR?R PVC [Suspect]
     Active Substance: SODIUM CHLORIDE
     Indication: NEPHROPROTECTIVE THERAPY
     Dosage: 1 ML/KG/HR FOR 12 HOURS BEFORE AND 12 HOURS AFTER THE PROCEDURE
     Route: 042
  3. IOPROMIDE [Suspect]
     Active Substance: IOPROMIDE
     Indication: NEPHROPROTECTIVE THERAPY
     Route: 065

REACTIONS (1)
  - Vomiting [Unknown]
